FAERS Safety Report 6328066-2 (Version None)
Quarter: 2009Q3

REPORT INFORMATION
  Report Type: 
  Country: None (occurrence: None)
  Receive Date: 20090825
  Receipt Date: 20081104
  Transmission Date: 20100115
  Serious: No
  Sender: FDA-Public Use
  Company Number: US-ABBOTT-08P-163-0485368-00

PATIENT
  Sex: Female
  Weight: 98.518 kg

DRUGS (1)
  1. SYNTHROID [Suspect]
     Indication: HYPOTHYROIDISM
     Route: 048
     Dates: start: 19660101

REACTIONS (5)
  - ALOPECIA [None]
  - DYSPHONIA [None]
  - SKIN EXFOLIATION [None]
  - SWELLING FACE [None]
  - WEIGHT INCREASED [None]
